FAERS Safety Report 16939817 (Version 1)
Quarter: 2019Q4

REPORT INFORMATION
  Report Type: Spontaneous
  Country: US (occurrence: US)
  Receive Date: 20190828
  Receipt Date: 20190828
  Transmission Date: 20200122
  Serious: Yes (Life-Threatening, Hospitalization)
  Sender: FDA-Public Use
  Company Number: None

PATIENT
  Age: 69 Year
  Sex: Male

DRUGS (2)
  1. LACTULOSE SOLUTION [Suspect]
     Active Substance: LACTULOSE
     Indication: AMMONIA INCREASED
     Dosage: ?          OTHER FREQUENCY:3-4 TIMES DAILY;?
     Route: 048
     Dates: start: 20190804, end: 20190806
  2. LACTULOSE SOLUTION [Suspect]
     Active Substance: LACTULOSE
     Indication: LIVER DISORDER
     Dosage: ?          OTHER FREQUENCY:3-4 TIMES DAILY;?
     Route: 048
     Dates: start: 20190804, end: 20190806

REACTIONS (8)
  - Product quality issue [None]
  - Product physical consistency issue [None]
  - Product taste abnormal [None]
  - Gait disturbance [None]
  - Confusional state [None]
  - Infrequent bowel movements [None]
  - Ammonia increased [None]
  - Drug ineffective [None]
